FAERS Safety Report 10335041 (Version 3)
Quarter: 2014Q3

REPORT INFORMATION
  Report Type: Spontaneous
  Country: NO (occurrence: NO)
  Receive Date: 20140723
  Receipt Date: 20140904
  Transmission Date: 20150326
  Serious: Yes (Life-Threatening, Hospitalization, Other)
  Sender: FDA-Public Use
  Company Number: NO-ELI_LILLY_AND_COMPANY-NO201407006580

PATIENT
  Age: 67 Year
  Sex: Male

DRUGS (4)
  1. ZYPADHERA [Suspect]
     Active Substance: OLANZAPINE PAMOATE
     Indication: SCHIZOPHRENIA
     Dosage: 300 MG, EVERY 3 WEEKS
     Route: 030
  2. ENALAPRIL [Concomitant]
     Active Substance: ENALAPRIL
     Indication: PRODUCT USED FOR UNKNOWN INDICATION
     Dosage: 10 MG, UNKNOWN
     Route: 048
  3. SPIRIVA [Concomitant]
     Active Substance: TIOTROPIUM BROMIDE MONOHYDRATE
     Indication: CHRONIC OBSTRUCTIVE PULMONARY DISEASE
     Dosage: 18 UNK, UNK
     Route: 055
  4. FOLIC ACID. [Concomitant]
     Active Substance: FOLIC ACID
     Indication: SUPPLEMENTATION THERAPY
     Dosage: 1 MG, UNKNOWN
     Route: 055

REACTIONS (8)
  - Muscle twitching [Unknown]
  - Heart rate increased [Unknown]
  - Balance disorder [Unknown]
  - Anticholinergic syndrome [Unknown]
  - Blood pressure increased [Unknown]
  - Neuroleptic malignant syndrome [Recovered/Resolved]
  - Dysarthria [Unknown]
  - Dizziness [Unknown]

NARRATIVE: CASE EVENT DATE: 20140612
